FAERS Safety Report 9253349 (Version 2)
Quarter: 2013Q2

REPORT INFORMATION
  Report Type: Spontaneous
  Country: US (occurrence: US)
  Receive Date: 20130424
  Receipt Date: 20130611
  Transmission Date: 20140414
  Serious: No
  Sender: FDA-Public Use
  Company Number: US-009507513-1304USA013713

PATIENT
  Age: 62 Year
  Sex: Male
  Weight: 79.37 kg

DRUGS (8)
  1. VICTRELIS [Suspect]
     Dosage: TAKE 4 CAPSULES BY MOUTH THREE TIMES A DAY WITH SNACK
     Route: 048
  2. PEGASYS [Suspect]
     Dosage: PROCLICK
  3. REBETOL [Suspect]
     Dosage: 200 MG, UNK
     Route: 048
  4. LISINOPRIL [Concomitant]
     Dosage: 10 MG, UNK
     Route: 048
  5. ALLOPURINOL [Concomitant]
     Dosage: 100 MG, UNK
     Route: 048
  6. LORAZEPAM [Concomitant]
  7. ASPIRIN [Concomitant]
     Route: 048
  8. ATIVAN [Concomitant]
     Dosage: 2 MG, UNK
     Route: 048

REACTIONS (11)
  - White blood cell count decreased [Unknown]
  - Dizziness [Unknown]
  - Rash [Unknown]
  - Fatigue [Unknown]
  - Pain [Unknown]
  - Influenza like illness [Unknown]
  - Dysgeusia [Unknown]
  - Weight decreased [Unknown]
  - Decreased appetite [Unknown]
  - Irritability [Unknown]
  - Emotional disorder [Unknown]
